FAERS Safety Report 23292730 (Version 1)
Quarter: 2023Q4

REPORT INFORMATION
  Report Type: Spontaneous
  Country: US (occurrence: US)
  Receive Date: 20231213
  Receipt Date: 20231213
  Transmission Date: 20240109
  Serious: No
  Sender: FDA-Public Use
  Company Number: US-SANOFI-01870367

PATIENT
  Age: 78 Year
  Sex: Male

DRUGS (15)
  1. DUPIXENT [Suspect]
     Active Substance: DUPILUMAB
     Indication: Asthma
     Dosage: 300 MG, QOW
     Dates: start: 2023
  2. PREDNISONE [Concomitant]
     Active Substance: PREDNISONE
  3. HYDRALAZINE [Concomitant]
     Active Substance: HYDRALAZINE HYDROCHLORIDE
  4. KLOR-CON M15 [Concomitant]
  5. METOLAZONE [Concomitant]
     Active Substance: METOLAZONE
  6. FUROSEMIDE [Concomitant]
     Active Substance: FUROSEMIDE
  7. GLIMEPIRIDE [Concomitant]
     Active Substance: GLIMEPIRIDE
  8. OLANZAPINE [Concomitant]
     Active Substance: OLANZAPINE
  9. ALPRAZOLAM [Concomitant]
     Active Substance: ALPRAZOLAM
  10. MELATONIN [Concomitant]
     Active Substance: MELATONIN
  11. MIRTAZAPINE [Concomitant]
     Active Substance: MIRTAZAPINE
  12. MONTELUKAST SODIUM [Concomitant]
     Active Substance: MONTELUKAST SODIUM
  13. ATORVASTATIN [Concomitant]
     Active Substance: ATORVASTATIN
  14. METFORMIN [Concomitant]
     Active Substance: METFORMIN HYDROCHLORIDE
  15. TRELEGY ELLIPTA [Concomitant]
     Active Substance: FLUTICASONE FUROATE\UMECLIDINIUM BROMIDE\VILANTEROL TRIFENATATE

REACTIONS (3)
  - Dyskinesia [Not Recovered/Not Resolved]
  - Gait disturbance [Not Recovered/Not Resolved]
  - Condition aggravated [Not Recovered/Not Resolved]

NARRATIVE: CASE EVENT DATE: 20230101
